FAERS Safety Report 7732133-6 (Version None)
Quarter: 2011Q3

REPORT INFORMATION
  Report Type: 
  Country: None (occurrence: None)
  Receive Date: 20110906
  Receipt Date: 20110815
  Transmission Date: 20111222
  Serious: No
  Sender: FDA-Public Use
  Company Number: US-AMGEN-USASP2011041293

PATIENT
  Sex: Female

DRUGS (1)
  1. PROLIA [Suspect]
     Indication: OSTEOPOROSIS POSTMENOPAUSAL
     Dosage: 60 MG, Q6MO
     Dates: start: 20101206, end: 20101206

REACTIONS (5)
  - GAIT DISTURBANCE [None]
  - BACK PAIN [None]
  - PARAESTHESIA [None]
  - LIMB DISCOMFORT [None]
  - INJECTION SITE PRURITUS [None]
